FAERS Safety Report 14822396 (Version 1)
Quarter: 2018Q2

REPORT INFORMATION
  Report Type: Spontaneous
  Country: GB (occurrence: GB)
  Receive Date: 20180427
  Receipt Date: 20180427
  Transmission Date: 20180711
  Serious: Yes (Other)
  Sender: FDA-Public Use
  Company Number: GB-TEVA-2018-GB-887127

PATIENT
  Age: 47 Year
  Sex: Female
  Weight: 81.18 kg

DRUGS (1)
  1. CITALOPRAM [Suspect]
     Active Substance: CITALOPRAM HYDROBROMIDE
     Indication: ANXIETY
     Route: 048
     Dates: start: 20170501, end: 20170507

REACTIONS (7)
  - Serotonin syndrome [Recovered/Resolved with Sequelae]
  - Anxiety [Unknown]
  - Diarrhoea [Recovered/Resolved]
  - Altered state of consciousness [Unknown]
  - Agitation [Unknown]
  - Hyperhidrosis [Unknown]
  - Confusional state [Unknown]

NARRATIVE: CASE EVENT DATE: 20170501
